FAERS Safety Report 8373453-4 (Version None)
Quarter: 2012Q2

REPORT INFORMATION
  Report Type: 
  Country: None (occurrence: None)
  Receive Date: 20120521
  Receipt Date: 20120511
  Transmission Date: 20120825
  Serious: Yes (Other)
  Sender: FDA-Public Use
  Company Number: US-BAYER-2012-035041

PATIENT
  Sex: Female

DRUGS (1)
  1. MIRENA [Suspect]
     Dosage: 20 MCG/24HR, CONT
     Route: 015
     Dates: start: 20100101, end: 20120417

REACTIONS (6)
  - WEIGHT DECREASED [None]
  - DRUG INEFFECTIVE [None]
  - GENITAL HAEMORRHAGE [None]
  - PAIN [None]
  - NAUSEA [None]
  - PROCEDURAL PAIN [None]
